FAERS Safety Report 22517403 (Version 2)
Quarter: 2023Q2

REPORT INFORMATION
  Report Type: Spontaneous
  Country: GB (occurrence: GB)
  Receive Date: 20230603
  Receipt Date: 20230612
  Transmission Date: 20230721
  Serious: Yes (Other)
  Sender: FDA-Public Use
  Company Number: GB-MHRA-MIDB-5e95026c-40f8-45ff-9c61-60fb50f9e9e4

PATIENT
  Sex: Male

DRUGS (3)
  1. MORPHINE [Suspect]
     Active Substance: MORPHINE
     Indication: Product used for unknown indication
     Dosage: 10MG IN 5ML ORAL SOLUTION, 10MG/ML INJECTION, 5 MG M/R TABLETS (12 HOURLY)
     Route: 065
  2. DEXAMETHASONE [Concomitant]
     Active Substance: DEXAMETHASONE
     Indication: Product used for unknown indication
     Dosage: TABLETS, 1MG/ML LIQUID AS NECESSARY
     Route: 065
  3. HALOPERIDOL [Concomitant]
     Active Substance: HALOPERIDOL
     Indication: Product used for unknown indication
     Dosage: UNK
     Route: 065

REACTIONS (2)
  - Hallucination [Recovered/Resolved]
  - Agitation [Recovered/Resolved]
